FAERS Safety Report 24175605 (Version 2)
Quarter: 2024Q3

REPORT INFORMATION
  Report Type: Report from Study
  Country: US (occurrence: US)
  Receive Date: 20240805
  Receipt Date: 20240918
  Transmission Date: 20241016
  Serious: Yes (Other)
  Sender: AMGEN
  Company Number: US-AMGEN-USASP2024152141

PATIENT
  Age: 23 Year
  Sex: Female

DRUGS (2)
  1. RAVICTI [Suspect]
     Active Substance: GLYCEROL PHENYLBUTYRATE
     Indication: Ornithine transcarbamoylase deficiency
     Dosage: 5 MILLILITER, TID
     Route: 048
     Dates: start: 20180920
  2. DUPIXENT [Concomitant]
     Active Substance: DUPILUMAB
     Dosage: PEN (2-PK)
     Route: 065

REACTIONS (4)
  - Loss of consciousness [Unknown]
  - Hyperammonaemia [Recovered/Resolved]
  - Heart rate increased [Recovered/Resolved]
  - Incorrect dose administered [Unknown]
